FAERS Safety Report 8169847-2 (Version None)
Quarter: 2012Q1

REPORT INFORMATION
  Report Type: 
  Country: None (occurrence: None)
  Receive Date: 20120105
  Receipt Date: 20110812
  Transmission Date: 20120608
  Serious: Yes (Hospitalization)
  Sender: FDA-Public Use
  Company Number: US-006561

PATIENT
  Age: 53 Year
  Sex: Female

DRUGS (3)
  1. LEVOXYL [Concomitant]
  2. NAPROSYN [Concomitant]
  3. PROHANCE [Suspect]
     Indication: NUCLEAR MAGNETIC RESONANCE IMAGING
     Dosage: ONCE INTRAVENOUS (NOT OTHERWISE SPECIFIED)
     Route: 042
     Dates: start: 20110725, end: 20110725

REACTIONS (7)
  - CHEST DISCOMFORT [None]
  - DYSPNOEA [None]
  - SNEEZING [None]
  - COUGH [None]
  - PHARYNGEAL OEDEMA [None]
  - THROAT IRRITATION [None]
  - FLUSHING [None]
